FAERS Safety Report 5027054-6 (Version None)
Quarter: 2006Q2

REPORT INFORMATION
  Report Type: 
  Country: None (occurrence: None)
  Receive Date: 20060609
  Receipt Date: 20060530
  Transmission Date: 20061013
  Serious: Yes (Death, Hospitalization)
  Sender: FDA-Public Use
  Company Number: 2006BI004000

PATIENT
  Age: 41 Year
  Sex: Male
  Weight: 38.5557 kg

DRUGS (7)
  1. AVONEX [Suspect]
     Indication: MULTIPLE SCLEROSIS
     Dosage: 30 UG; QW; IM
     Route: 030
     Dates: start: 19960101, end: 20030101
  2. AVONEX [Suspect]
     Indication: MULTIPLE SCLEROSIS
     Dosage: 30 UG; QW; IM
     Route: 030
     Dates: start: 20030101, end: 20050901
  3. BACLOFEN [Concomitant]
  4. COLACE [Concomitant]
  5. UROQUID ACID #2 [Concomitant]
  6. VITAMIN B-12 [Concomitant]
  7. VITAMIN B6 [Concomitant]

REACTIONS (2)
  - DECUBITUS ULCER [None]
  - RESPIRATORY FAILURE [None]
